FAERS Safety Report 5387474-7 (Version None)
Quarter: 2007Q3

REPORT INFORMATION
  Report Type: 
  Country: None (occurrence: None)
  Receive Date: 20070711
  Receipt Date: 20070711
  Transmission Date: 20080115
  Serious: Yes (Hospitalization)
  Sender: FDA-Public Use
  Company Number: None

PATIENT
  Age: 60 Year
  Sex: Male
  Weight: 108.4 kg

DRUGS (3)
  1. LISINOPRIL [Suspect]
     Indication: DIABETES MELLITUS
     Dosage: 80MG, 40MG BID, ORAL
     Route: 048
     Dates: start: 20060707, end: 20070621
  2. LISINOPRIL [Suspect]
     Indication: HYPERTENSION
     Dosage: 80MG, 40MG BID, ORAL
     Route: 048
     Dates: start: 20060707, end: 20070621
  3. LOSARTAN POTASSIUM [Concomitant]

REACTIONS (1)
  - ANGIOEDEMA [None]
